FAERS Safety Report 5917221-9 (Version None)
Quarter: 2008Q4

REPORT INFORMATION
  Report Type: 
  Country: None (occurrence: None)
  Receive Date: 20081009
  Receipt Date: 20080929
  Transmission Date: 20090506
  Serious: Yes (Other)
  Sender: FDA-Public Use
  Company Number: 2008-1200

PATIENT
  Age: 84 Year
  Sex: Male

DRUGS (4)
  1. SOMATULINE DEPOT [Suspect]
     Indication: POST GASTRIC SURGERY SYNDROME
     Dosage: (60 MG, NOT REPORTED)
     Route: 030
     Dates: start: 20070705, end: 20080701
  2. OMEPRAZOLE [Concomitant]
  3. HYDROXOCOBALAMIN [Concomitant]
  4. ADALAT [Concomitant]

REACTIONS (2)
  - OFF LABEL USE [None]
  - WEIGHT DECREASED [None]
